FAERS Safety Report 17173900 (Version 3)
Quarter: 2020Q2

REPORT INFORMATION
  Report Type: Spontaneous
  Country: US (occurrence: US)
  Receive Date: 20191219
  Receipt Date: 20200402
  Transmission Date: 20200713
  Serious: No
  Sender: FDA-Public Use
  Company Number: US-PFIZER INC-2019546087

PATIENT
  Age: 67 Year
  Sex: Female
  Weight: 113 kg

DRUGS (1)
  1. DESVENLAFAXINE SUCCINATE MONOHYDRATE [Suspect]
     Active Substance: DESVENLAFAXINE SUCCINATE
     Dosage: 50 MG, 1X/DAY
     Dates: start: 20190929, end: 2019

REACTIONS (2)
  - Therapeutic product effect incomplete [Unknown]
  - Anxiety [Unknown]

NARRATIVE: CASE EVENT DATE: 20190930
